FAERS Safety Report 7587085-9 (Version None)
Quarter: 2011Q3

REPORT INFORMATION
  Report Type: 
  Country: None (occurrence: None)
  Receive Date: 20110701
  Receipt Date: 20110620
  Transmission Date: 20111222
  Serious: Yes (Other)
  Sender: FDA-Public Use
  Company Number: PHEH2010US03179

PATIENT
  Sex: Male
  Weight: 96.599 kg

DRUGS (8)
  1. CENTRUM SILVER [Concomitant]
     Route: 048
  2. CRESTOR [Concomitant]
  3. CERESTAT [Concomitant]
     Dosage: 10 MG, QD
     Route: 048
  4. STOOL SOFTENER [Concomitant]
  5. EXJADE [Suspect]
     Indication: ACUTE MYELOID LEUKAEMIA
     Dosage: 2000 MG, UNK
     Route: 048
     Dates: start: 20090914, end: 20091201
  6. EXJADE [Suspect]
     Indication: IRON OVERLOAD
     Dosage: 1500 MG, UNK
     Route: 048
     Dates: end: 20110526
  7. ASPIRIN [Concomitant]
     Dosage: 81 MG, QD
     Route: 048
  8. PROCRIT [Concomitant]

REACTIONS (9)
  - EPIDERMAL GROWTH FACTOR RECEPTOR DECREASED [None]
  - SERUM FERRITIN INCREASED [None]
  - BLOOD IRON INCREASED [None]
  - PROTEIN TOTAL DECREASED [None]
  - BLOOD CREATININE INCREASED [None]
  - RENAL DISORDER [None]
  - BLOOD UREA INCREASED [None]
  - BLOOD ERYTHROPOIETIN INCREASED [None]
  - BLOOD GLUCOSE INCREASED [None]
